FAERS Safety Report 16236696 (Version 1)
Quarter: 2019Q2

REPORT INFORMATION
  Report Type: Spontaneous
  Country: IT (occurrence: IT)
  Receive Date: 20190425
  Receipt Date: 20190425
  Transmission Date: 20190711
  Serious: Yes (Hospitalization, Other)
  Sender: FDA-Public Use
  Company Number: IT-SUN PHARMACEUTICAL INDUSTRIES LTD-2019RR-206258

PATIENT
  Age: 56 Year
  Sex: Female

DRUGS (8)
  1. ENOXAPARIN [Concomitant]
     Active Substance: ENOXAPARIN
     Indication: ANTICOAGULANT THERAPY
     Dosage: 6000UI FOR 2 TIMES A DAY
     Route: 065
  2. CORTONE ACETATE [Concomitant]
     Indication: ADRENAL INSUFFICIENCY
     Dosage: 25 MILLIGRAM AT 8 HOURS
     Route: 048
  3. ANASTROZOLE. [Suspect]
     Active Substance: ANASTROZOLE
     Indication: BREAST CANCER
     Dosage: 1 MILLIGRAM, DAILY
     Route: 065
  4. HYDROCORTONE ACETATE [Concomitant]
     Indication: ADRENAL INSUFFICIENCY
     Dosage: 50 MILLIGRAM EVERY 6 HOURS FOR 48 HOURS
     Route: 042
  5. FLEBOGAMMA [Concomitant]
     Active Substance: HUMAN IMMUNOGLOBULIN G
     Indication: PRODUCT USED FOR UNKNOWN INDICATION
     Dosage: A CYCLE
     Route: 042
  6. HYDROXYCHLOROQUINE [Concomitant]
     Active Substance: HYDROXYCHLOROQUINE
     Indication: PRODUCT USED FOR UNKNOWN INDICATION
     Dosage: 400 MILLIGRAM, DAILY
     Route: 065
  7. WARFARIN [Concomitant]
     Active Substance: WARFARIN
     Indication: ANTICOAGULANT THERAPY
     Route: 065
  8. CORTONE ACETATE [Concomitant]
     Dosage: 6.5 MILLIGRAM AT 13 HOURS AND AT 18 HOURS
     Route: 048

REACTIONS (3)
  - Antiphospholipid syndrome [Unknown]
  - Adrenal haemorrhage [Unknown]
  - Aphasia [Unknown]
